FAERS Safety Report 8261894-5 (Version None)
Quarter: 2012Q2

REPORT INFORMATION
  Report Type: 
  Country: None (occurrence: None)
  Receive Date: 20120405
  Receipt Date: 20120328
  Transmission Date: 20120825
  Serious: Yes (Hospitalization, Other)
  Sender: FDA-Public Use
  Company Number: US-BAYER-2011-077330

PATIENT
  Age: 34 Year
  Sex: Female
  Weight: 63.039 kg

DRUGS (19)
  1. LACTOBACILLUS ACID [Concomitant]
     Dosage: UNK
     Route: 048
     Dates: start: 20070803
  2. TORADOL [Concomitant]
     Dosage: 30 MG, UNK
     Route: 042
     Dates: start: 20070706
  3. FLAGYL [Concomitant]
     Dosage: 500 MG, UNK
     Route: 048
     Dates: start: 20070803
  4. ULTRACET [Concomitant]
  5. PROTONIX [Concomitant]
     Dosage: 40 MG, UNK
     Route: 048
     Dates: start: 20070711
  6. REGLAN [Concomitant]
     Dosage: 10 MG, UNK
     Route: 042
     Dates: start: 20070710
  7. DILAUDID [Concomitant]
     Dosage: 1 MG, UNK
     Route: 042
     Dates: start: 20070801
  8. PROMETHAZINE [Concomitant]
  9. MORPHINE [Concomitant]
     Dosage: 4 MG, UNK
     Route: 042
     Dates: start: 20070704
  10. PROTONIX [Concomitant]
     Dosage: 40 MG, UNK
     Route: 042
     Dates: start: 20070705
  11. TORADOL [Concomitant]
     Dosage: 10 MG, UNK
     Route: 048
     Dates: start: 20070809
  12. M.V.I. [Concomitant]
     Dosage: UNK UNK, QD
     Route: 048
     Dates: start: 20090803
  13. YASMIN [Suspect]
     Dosage: UNK
     Dates: start: 20060901, end: 20070701
  14. COMPAZINE [Concomitant]
     Dosage: 25 MG, UNK
     Route: 048
     Dates: start: 20070710
  15. LEVAQUIN [Concomitant]
     Dosage: 500 MG, UNK
     Route: 048
     Dates: start: 20070730
  16. ZOFRAN [Concomitant]
     Dosage: 4 MG, UNK
     Route: 042
     Dates: start: 20070710
  17. LORCET-HD [Concomitant]
     Dosage: UNK UNK, PRN
     Route: 048
     Dates: start: 20070810
  18. PHENERGAN HCL [Concomitant]
     Dosage: 25 MG, UNK
     Route: 048
     Dates: start: 20070705
  19. VOLTAREN [Concomitant]
     Dosage: 75 MG, UNK
     Route: 048
     Dates: start: 20070809

REACTIONS (10)
  - INJURY [None]
  - MYOCARDIAL INFARCTION [None]
  - GALLBLADDER DISORDER [None]
  - CHOLECYSTITIS CHRONIC [None]
  - PULMONARY EMBOLISM [None]
  - PAIN [None]
  - DEEP VEIN THROMBOSIS [None]
  - CEREBROVASCULAR ACCIDENT [None]
  - BILIARY DYSKINESIA [None]
  - EMOTIONAL DISTRESS [None]
